FAERS Safety Report 7163039-1 (Version None)
Quarter: 2010Q4

REPORT INFORMATION
  Report Type: 
  Country: None (occurrence: None)
  Receive Date: 20101215
  Receipt Date: 20100215
  Transmission Date: 20110411
  Serious: Yes (Other)
  Sender: FDA-Public Use
  Company Number: DE-PFIZER INC-2010019367

PATIENT
  Age: 88 Year
  Sex: Female

DRUGS (3)
  1. LYRICA [Suspect]
     Indication: POLYNEUROPATHY
     Dosage: 50 MG, 1X/DAY
     Dates: start: 20100101, end: 20100101
  2. LYRICA [Suspect]
     Dosage: 50 MG, 2X/DAY
     Dates: start: 20100101, end: 20100101
  3. LYRICA [Suspect]
     Dosage: 50 MG, 3X/DAY
     Dates: start: 20100101, end: 20100201

REACTIONS (6)
  - CONSTIPATION [None]
  - DIARRHOEA [None]
  - GAIT DISTURBANCE [None]
  - VERTIGO [None]
  - VOMITING [None]
  - WITHDRAWAL SYNDROME [None]
